FAERS Safety Report 8029381-7 (Version None)
Quarter: 2012Q1

REPORT INFORMATION
  Report Type: 
  Country: None (occurrence: None)
  Receive Date: 20120106
  Receipt Date: 20111014
  Transmission Date: 20120608
  Serious: Yes (Congenital Anomaly)
  Sender: FDA-Public Use
  Company Number: US-ROCHE-GNE308113

PATIENT

DRUGS (1)
  1. OMALIZUMAB [Suspect]
     Indication: ASTHMA
     Dosage: 225 MG, UNK
     Dates: start: 20100401, end: 20100907

REACTIONS (5)
  - PYREXIA [None]
  - PILONIDAL CYST CONGENITAL [None]
  - BRONCHIOLITIS [None]
  - RHINITIS [None]
  - EAR INFECTION [None]
